FAERS Safety Report 4774511-3 (Version None)
Quarter: 2005Q3

REPORT INFORMATION
  Report Type: 
  Country: None (occurrence: None)
  Receive Date: 20050919
  Receipt Date: 20050919
  Transmission Date: 20060218
  Serious: Yes (Other)
  Sender: FDA-Public Use
  Company Number: None

PATIENT
  Age: 41 Year
  Sex: Female
  Weight: 58.9676 kg

DRUGS (1)
  1. EFFEXOR XR [Suspect]
     Indication: MIGRAINE
     Dosage: 150MG DAILY PO
     Route: 048
     Dates: start: 20050228, end: 20050809

REACTIONS (8)
  - DYSPNOEA [None]
  - HALLUCINATION, AUDITORY [None]
  - HALLUCINATION, VISUAL [None]
  - INSOMNIA [None]
  - NERVOUS SYSTEM DISORDER [None]
  - PARAESTHESIA [None]
  - SENSORY DISTURBANCE [None]
  - TINNITUS [None]
